FAERS Safety Report 4591072-2 (Version None)
Quarter: 2005Q1

REPORT INFORMATION
  Report Type: 
  Country: None (occurrence: None)
  Receive Date: 20050225
  Receipt Date: 20050210
  Transmission Date: 20050727
  Serious: Yes (Hospitalization)
  Sender: FDA-Public Use
  Company Number: 200510546FR

PATIENT
  Age: 77 Year
  Sex: Female

DRUGS (6)
  1. IXPRIM [Suspect]
     Indication: BACK PAIN
     Route: 048
     Dates: start: 20041205, end: 20041213
  2. TAVANIC [Suspect]
     Indication: PNEUMONIA
     Route: 048
     Dates: start: 20041213, end: 20041218
  3. LASILIX [Suspect]
     Route: 048
     Dates: end: 20041213
  4. COLCHICINE [Suspect]
     Indication: GOUT
     Route: 048
     Dates: start: 20041212, end: 20041218
  5. CALCIPARINE [Suspect]
     Dates: start: 20041214, end: 20041218
  6. PERFALGAN [Suspect]
     Route: 042
     Dates: start: 20041214, end: 20041218

REACTIONS (23)
  - ALCOHOL POISONING [None]
  - ALCOHOL USE [None]
  - ALPHA 1 FOETOPROTEIN INCREASED [None]
  - ANAEMIA MACROCYTIC [None]
  - ANTINUCLEAR ANTIBODY POSITIVE [None]
  - ASCITES [None]
  - CONDITION AGGRAVATED [None]
  - DUODENAL ULCER [None]
  - DUODENITIS [None]
  - ENCEPHALOPATHY [None]
  - GASTROINTESTINAL HAEMORRHAGE [None]
  - GENERALISED OEDEMA [None]
  - GOUT [None]
  - HEPATIC CIRRHOSIS [None]
  - HYPERVENTILATION [None]
  - PLATELET COUNT INCREASED [None]
  - PNEUMONIA [None]
  - PNEUMONITIS [None]
  - PROTHROMBIN TIME PROLONGED [None]
  - RENAL FAILURE [None]
  - RESPIRATORY ALKALOSIS [None]
  - UPPER GASTROINTESTINAL HAEMORRHAGE [None]
  - VARICES OESOPHAGEAL [None]
